FAERS Safety Report 7026479-7 (Version None)
Quarter: 2010Q3

REPORT INFORMATION
  Report Type: 
  Country: None (occurrence: None)
  Receive Date: 20100929
  Receipt Date: 20100922
  Transmission Date: 20110219
  Serious: Yes (Other)
  Sender: FDA-Public Use
  Company Number: WAES 1005DEU00093

PATIENT
  Age: 62 Year
  Sex: Female

DRUGS (2)
  1. FOSAMAX [Suspect]
     Indication: OSTEOPOROSIS
     Dosage: PO
     Route: 048
  2. RISEDRONATE SODIUM [Suspect]
     Indication: OSTEOPOROSIS
     Dosage: PO
     Route: 048

REACTIONS (7)
  - ALVEOLAR OSTEITIS [None]
  - ALVEOLITIS [None]
  - IMPAIRED HEALING [None]
  - LEG AMPUTATION [None]
  - OSTEONECROSIS OF JAW [None]
  - PAIN [None]
  - TOOTH DISORDER [None]
